FAERS Safety Report 15967325 (Version 1)
Quarter: 2019Q1

REPORT INFORMATION
  Report Type: Spontaneous
  Country: US (occurrence: US)
  Receive Date: 20190215
  Receipt Date: 20190215
  Transmission Date: 20190418
  Serious: No
  Sender: FDA-Public Use
  Company Number: US-SA-2018SA044844

PATIENT

DRUGS (8)
  1. ARAVA [Suspect]
     Active Substance: LEFLUNOMIDE
     Dosage: UNK UNK,UNK
     Route: 048
  2. ENBREL [Concomitant]
     Active Substance: ETANERCEPT
  3. HUMIRA [Suspect]
     Active Substance: ADALIMUMAB
  4. XELJANZ [Concomitant]
     Active Substance: TOFACITINIB CITRATE
     Dosage: 11 MG,QD
     Route: 048
  5. METHOTREXATE. [Suspect]
     Active Substance: METHOTREXATE
  6. RITUXAN [Concomitant]
     Active Substance: RITUXIMAB
  7. HYDROXYCHLOROQUINE SULFATE. [Suspect]
     Active Substance: HYDROXYCHLOROQUINE SULFATE
  8. SULFASALAZINE. [Suspect]
     Active Substance: SULFASALAZINE

REACTIONS (6)
  - Drug ineffective [Unknown]
  - Liver function test abnormal [Unknown]
  - Malaise [Unknown]
  - Diarrhoea [Unknown]
  - Skin toxicity [Unknown]
  - Fear of disease [Unknown]
